FAERS Safety Report 20214575 (Version 1)
Quarter: 2021Q4

REPORT INFORMATION
  Report Type: Report from Study
  Country: US (occurrence: US)
  Receive Date: 20211221
  Receipt Date: 20211221
  Transmission Date: 20220304
  Serious: Yes (Hospitalization)
  Sender: FDA-Public Use
  Company Number: US-ABBVIE-21K-163-4204617-00

PATIENT
  Sex: Female

DRUGS (1)
  1. HUMIRA [Suspect]
     Active Substance: ADALIMUMAB
     Indication: Rheumatoid arthritis
     Dosage: CITRATE FREE
     Route: 058
     Dates: start: 20210830, end: 2021

REACTIONS (3)
  - Central venous catheterisation [Recovering/Resolving]
  - Abdominal operation [Unknown]
  - Post procedural sepsis [Recovering/Resolving]

NARRATIVE: CASE EVENT DATE: 20210101
